FAERS Safety Report 23551424 (Version 1)
Quarter: 2024Q1

REPORT INFORMATION
  Report Type: Report from Study
  Country: TR (occurrence: TR)
  Receive Date: 20240222
  Receipt Date: 20240222
  Transmission Date: 20240410
  Serious: Yes (Death)
  Sender: FDA-Public Use
  Company Number: TR-ABBVIE-5647138

PATIENT
  Sex: Female
  Weight: 60 kg

DRUGS (4)
  1. CARBIDOPA\LEVODOPA [Suspect]
     Active Substance: CARBIDOPA\LEVODOPA
     Indication: Parkinson^s disease
     Dosage: MORNING DOSE (ML): 2.20 CONTINUOUS DOSE (ML): 3.20 EXTRA DOSE (ML): 0.50
     Route: 050
     Dates: start: 20160404
  2. CARBIDOPA\LEVODOPA [Suspect]
     Active Substance: CARBIDOPA\LEVODOPA
  3. RIVOTRIL [Concomitant]
     Active Substance: CLONAZEPAM
     Indication: Sleep disorder
     Dosage: FORM STRENGTH 2 MILLIGRAM
     Route: 048
     Dates: start: 2014
  4. AMANTADINE SULFATE [Concomitant]
     Active Substance: AMANTADINE SULFATE
     Indication: Parkinson^s disease
     Dosage: FORM STRENGTH WAS 100 MILLIGRAM?FREQUENCY TEXT: 1X0.5
     Route: 048
     Dates: start: 2012

REACTIONS (1)
  - General physical health deterioration [Fatal]
